FAERS Safety Report 8141750-3 (Version None)
Quarter: 2012Q1

REPORT INFORMATION
  Report Type: 
  Country: None (occurrence: None)
  Receive Date: 20120216
  Receipt Date: 20120213
  Transmission Date: 20120608
  Serious: Yes (Death, Hospitalization)
  Sender: FDA-Public Use
  Company Number: US-MEDIMMUNE-MEDI-0014865

PATIENT
  Sex: Male

DRUGS (10)
  1. OMEPRAZOLE [Concomitant]
  2. FAMOTIDINE [Concomitant]
  3. POTASSIUM CHLORIDE [Concomitant]
  4. SODIUM CHLORIDE [Concomitant]
  5. SYNAGIS [Suspect]
     Route: 030
     Dates: start: 20111102, end: 20111102
  6. LEVOTHYROXINE SODIUM [Concomitant]
  7. CAFFEINE CITRATE [Concomitant]
  8. VALSARTAN/HYDROCHLOORTHIAZIDE [Concomitant]
  9. SPIRONOLACTONE [Concomitant]
  10. VITAMIN D [Concomitant]

REACTIONS (5)
  - DEHYDRATION [None]
  - GASTROINTESTINAL DISORDER [None]
  - DEATH [None]
  - DIARRHOEA [None]
  - OLIGURIA [None]
